FAERS Safety Report 5503485-2 (Version None)
Quarter: 2007Q4

REPORT INFORMATION
  Report Type: 
  Country: None (occurrence: None)
  Receive Date: 20071029
  Receipt Date: 20071012
  Transmission Date: 20080405
  Serious: Yes (Death)
  Sender: FDA-Public Use
  Company Number: ENT 2007-0157

PATIENT
  Age: 62 Year
  Sex: Female

DRUGS (11)
  1. COMTAN [Suspect]
     Indication: DRUG EFFECT DECREASED
     Dosage: 300 MG (100 MG, 3 IN 1 D) ORAL
     Route: 048
     Dates: start: 20070809
  2. COMTAN [Suspect]
     Indication: PARKINSON'S DISEASE
     Dosage: 300 MG (100 MG, 3 IN 1 D) ORAL
     Route: 048
     Dates: start: 20070809
  3. PANTOSIN [Suspect]
     Indication: CONSTIPATION
     Dosage: 300 MG ORAL
     Route: 048
  4. PRAMIPEXOLE DIHYDROCHLORIDE [Suspect]
     Indication: PARKINSON'S DISEASE
     Dosage: 1.5 MG ORAL
     Route: 048
     Dates: start: 20050707
  5. NEODOPASOL [Suspect]
     Indication: PARKINSON'S DISEASE
     Dosage: 300 MG ORAL
     Route: 048
     Dates: start: 19930603
  6. DOPS [Suspect]
     Indication: HYPOTENSION
     Dosage: 300 MG ORAL
     Route: 048
     Dates: start: 19930224
  7. DEPAS [Suspect]
     Indication: INSOMNIA
     Dosage: 0.5 MG ORAL
     Route: 048
     Dates: end: 20070901
  8. CLONAZEPAM [Suspect]
     Indication: HYPOAESTHESIA
     Dosage: 1 MG ORAL
     Route: 048
  9. LAC B [Suspect]
     Indication: CONSTIPATION
     Dosage: 3 G ORAL
     Route: 048
     Dates: start: 20030715
  10. ALFAROL [Suspect]
     Dosage: 0.5 MG ORAL
     Route: 048
  11. MAGLAX [Suspect]
     Indication: CONSTIPATION
     Dosage: 990 MG ORAL
     Route: 048

REACTIONS (8)
  - CARDIO-RESPIRATORY ARREST [None]
  - CARDIOGENIC SHOCK [None]
  - CHEST INJURY [None]
  - EXCORIATION [None]
  - FALL [None]
  - HAEMOLYSIS [None]
  - ORGAN FAILURE [None]
  - SUDDEN DEATH [None]
